FAERS Safety Report 20131697 (Version 2)
Quarter: 2021Q4

REPORT INFORMATION
  Report Type: Spontaneous
  Country: DE (occurrence: DE)
  Receive Date: 20211130
  Receipt Date: 20211207
  Transmission Date: 20220303
  Serious: Yes (Hospitalization, Other)
  Sender: FDA-Public Use
  Company Number: DE-INTERPHARM-MWE-IPA-21_00012

PATIENT
  Age: 61 Year
  Sex: Male

DRUGS (5)
  1. METOPROLOL [Suspect]
     Active Substance: METOPROLOL
     Indication: Hypertension
     Dosage: UNK
     Route: 048
  2. RAMIPRIL [Suspect]
     Active Substance: RAMIPRIL
     Indication: Hypertension
     Dosage: UNK
     Route: 048
  3. IBUPROFEN [Suspect]
     Active Substance: IBUPROFEN
     Indication: Back pain
     Dosage: UNK
     Route: 048
  4. METOPROLOL [Concomitant]
     Active Substance: METOPROLOL
     Indication: Hypertension
     Dosage: UNK
  5. RAMIPRIL [Concomitant]
     Active Substance: RAMIPRIL
     Indication: Hypertension
     Dosage: UNK

REACTIONS (9)
  - Duodenal ulcer [Recovered/Resolved]
  - Melaena [Recovered/Resolved]
  - Chronic gastritis [Unknown]
  - Gastrooesophageal reflux disease [Unknown]
  - Haematemesis [Recovered/Resolved]
  - Abdominal pain [Recovered/Resolved]
  - Gastrointestinal haemorrhage [Unknown]
  - Anaemia [Unknown]
  - Helicobacter gastritis [Unknown]
